FAERS Safety Report 7992585-3 (Version None)
Quarter: 2011Q4

REPORT INFORMATION
  Report Type: 
  Country: None (occurrence: None)
  Receive Date: 20111219
  Receipt Date: 20111021
  Transmission Date: 20120403
  Serious: No
  Sender: FDA-Public Use
  Company Number: US-ASTRAZENECA-2011SE58916

PATIENT
  Age: 73 Year
  Sex: Male

DRUGS (2)
  1. CRESTOR [Suspect]
     Route: 048
  2. XIFAFAN [Concomitant]

REACTIONS (4)
  - IMPAIRED GASTRIC EMPTYING [None]
  - HELICOBACTER INFECTION [None]
  - GASTRIC DISORDER [None]
  - GASTRITIS [None]
